FAERS Safety Report 4578374-0 (Version None)
Quarter: 2005Q1

REPORT INFORMATION
  Report Type: 
  Country: None (occurrence: None)
  Receive Date: 20050209
  Receipt Date: 20050121
  Transmission Date: 20050727
  Serious: Yes (Hospitalization)
  Sender: FDA-Public Use
  Company Number: USA050189015

PATIENT
  Age: 65 Year
  Sex: Female

DRUGS (4)
  1. FORTEO [Suspect]
     Indication: OSTEOPOROSIS
     Dosage: 20 UG
     Dates: start: 20041101, end: 20050112
  2. CALCIUM GLUCONATE [Concomitant]
  3. WELCHOL [Concomitant]
  4. ZETIA [Concomitant]

REACTIONS (3)
  - CONSTIPATION [None]
  - HERNIA [None]
  - PHARMACEUTICAL PRODUCT COMPLAINT [None]
